FAERS Safety Report 19743128 (Version 1)
Quarter: 2021Q3

REPORT INFORMATION
  Report Type: Spontaneous
  Country: IT (occurrence: IT)
  Receive Date: 20210825
  Receipt Date: 20210825
  Transmission Date: 20211014
  Serious: Yes (Life-Threatening, Hospitalization, Other)
  Sender: FDA-Public Use
  Company Number: IT-LUPIN PHARMACEUTICALS INC.-2021-15534

PATIENT
  Age: 70 Year
  Sex: Female

DRUGS (14)
  1. DOBUTAMINE [Suspect]
     Active Substance: DOBUTAMINE HYDROCHLORIDE
     Indication: WATERHOUSE-FRIDERICHSEN SYNDROME
     Dosage: 6 MICROGRAM/KILOGRAM PER MIN
     Route: 065
  2. NORADRENALINE [Suspect]
     Active Substance: NOREPINEPHRINE
     Indication: MENINGOCOCCAL INFECTION
  3. HYDROCORTISONE. [Suspect]
     Active Substance: HYDROCORTISONE
     Indication: WATERHOUSE-FRIDERICHSEN SYNDROME
     Dosage: UNK
     Route: 065
  4. HYDROCORTISONE. [Suspect]
     Active Substance: HYDROCORTISONE
     Indication: MENINGOCOCCAL SEPSIS
  5. HYDROCORTISONE. [Suspect]
     Active Substance: HYDROCORTISONE
     Indication: MENINGOCOCCAL INFECTION
  6. NORADRENALINE [Suspect]
     Active Substance: NOREPINEPHRINE
     Indication: MENINGOCOCCAL SEPSIS
  7. DOBUTAMINE [Suspect]
     Active Substance: DOBUTAMINE HYDROCHLORIDE
     Indication: MENINGOCOCCAL INFECTION
  8. ADRENALINE [Suspect]
     Active Substance: EPINEPHRINE
     Indication: MENINGOCOCCAL INFECTION
  9. CEFTRIAXONE. [Concomitant]
     Active Substance: CEFTRIAXONE
     Indication: MENINGOCOCCAL INFECTION
     Route: 065
  10. ADRENALINE [Suspect]
     Active Substance: EPINEPHRINE
     Indication: WATERHOUSE-FRIDERICHSEN SYNDROME
     Dosage: 0.5 MICROGRAM/KILOGRAM PER MIN
     Route: 065
  11. ADRENALINE [Suspect]
     Active Substance: EPINEPHRINE
     Indication: MENINGOCOCCAL SEPSIS
  12. VANCOMYCIN [Concomitant]
     Active Substance: VANCOMYCIN
     Indication: MENINGOCOCCAL INFECTION
     Route: 065
  13. NORADRENALINE [Suspect]
     Active Substance: NOREPINEPHRINE
     Indication: WATERHOUSE-FRIDERICHSEN SYNDROME
     Dosage: 1 MICROGRAM/KILOGRAM PER MIN
     Route: 065
  14. DOBUTAMINE [Suspect]
     Active Substance: DOBUTAMINE HYDROCHLORIDE
     Indication: MENINGOCOCCAL SEPSIS

REACTIONS (2)
  - Drug ineffective [Unknown]
  - Multiple organ dysfunction syndrome [Unknown]
